FAERS Safety Report 10168089 (Version 1)
Quarter: 2014Q2

REPORT INFORMATION
  Report Type: Spontaneous
  Country: US (occurrence: US)
  Receive Date: 20140512
  Receipt Date: 20140512
  Transmission Date: 20141212
  Serious: Yes (Other)
  Sender: FDA-Public Use
  Company Number: US-ACTAVIS-2014-09834

PATIENT
  Age: 7 Year
  Sex: Male

DRUGS (1)
  1. QUETIAPINE (AGPTC) [Suspect]
     Indication: AUTISM
     Dosage: UNKNOWN
     Route: 065

REACTIONS (1)
  - Hallucination [Unknown]
